FAERS Safety Report 6263106-0 (Version None)
Quarter: 2009Q3

REPORT INFORMATION
  Report Type: 
  Country: None (occurrence: None)
  Receive Date: 20090710
  Receipt Date: 20090702
  Transmission Date: 20100115
  Serious: Yes (Other)
  Sender: FDA-Public Use
  Company Number: US-CELGENEUS-163-21880-09070114

PATIENT
  Sex: Male
  Weight: 116 kg

DRUGS (3)
  1. REVLIMID [Suspect]
     Route: 048
     Dates: start: 20090427, end: 20090629
  2. NEURONTIN [Suspect]
     Indication: DRUG USE FOR UNKNOWN INDICATION
     Route: 065
  3. ACYCLOVIR [Concomitant]
     Indication: DRUG USE FOR UNKNOWN INDICATION
     Route: 065

REACTIONS (1)
  - BLOOD CREATINE PHOSPHOKINASE INCREASED [None]
